FAERS Safety Report 17028125 (Version 3)
Quarter: 2019Q4

REPORT INFORMATION
  Report Type: Spontaneous
  Country: JP (occurrence: JP)
  Receive Date: 20191113
  Receipt Date: 20191204
  Transmission Date: 20200122
  Serious: Yes (Death, Hospitalization)
  Sender: FDA-Public Use
  Company Number: JP-ANIPHARMA-2019-JP-000227

PATIENT
  Age: 82 Year
  Sex: Male

DRUGS (7)
  1. LANSOPRAZOLE (NON-SPECIFIC) [Concomitant]
     Active Substance: LANSOPRAZOLE
     Dosage: 1 DF QD
  2. TRAZENTA [Concomitant]
     Active Substance: LINAGLIPTIN
     Dosage: 1 DF QD
     Route: 048
  3. UNISIA [Concomitant]
     Active Substance: AMLODIPINE BESYLATE\CANDESARTAN CILEXETIL
     Dosage: 1 DF QD
     Route: 048
  4. CASODEX [Suspect]
     Active Substance: BICALUTAMIDE
     Indication: PROSTATE CANCER
     Dosage: 80 MG QD
     Route: 048
     Dates: start: 20180928, end: 20190809
  5. ZOLADEX [Suspect]
     Active Substance: GOSERELIN ACETATE
     Dosage: 3.6 MG Q4WK
     Route: 058
     Dates: start: 20180929
  6. TRESIBA [Concomitant]
     Active Substance: INSULIN DEGLUDEC
     Dosage: 22 DF UNK
     Route: 065
  7. SUREPOST [Concomitant]
     Active Substance: REPAGLINIDE
     Dosage: 3 DF QD
     Route: 048

REACTIONS (13)
  - Off label use [Recovered/Resolved]
  - Cerebral haemorrhage [Fatal]
  - Malignant neoplasm progression [Unknown]
  - Back pain [Unknown]
  - Metastases to bone [Unknown]
  - Injection site bruising [Unknown]
  - Abdominal pain lower [Unknown]
  - Platelet count decreased [Fatal]
  - Disseminated intravascular coagulation [Fatal]
  - Infection [Fatal]
  - Haemoptysis [Unknown]
  - Lymphadenopathy [Unknown]
  - Metastases to lymph nodes [Unknown]

NARRATIVE: CASE EVENT DATE: 20180928
